FAERS Safety Report 8855846 (Version 1)
Quarter: 2012Q4

REPORT INFORMATION
  Report Type: 
  Country: US (occurrence: US)
  Receive Date: 20121023
  Receipt Date: 20121023
  Transmission Date: 20130627
  Serious: No
  Sender: FDA-Public Use
  Company Number: US-AMGEN-USASP2012058629

PATIENT
  Age: 64 Year
  Sex: Female
  Weight: 56 kg

DRUGS (7)
  1. ENBREL [Suspect]
     Indication: PRODUCT USED FOR UNKNOWN INDICATION
     Dosage: 50 mg, qwk
     Route: 058
  2. CELEXA                             /00582602/ [Concomitant]
     Dosage: 10 mg, UNK
  3. CALCIUM D                          /00944201/ [Concomitant]
     Dosage: UNK
  4. LORATADIN [Concomitant]
     Dosage: UNK
  5. MULTIVITAMINS, PLAIN [Concomitant]
     Dosage: UNK
  6. ADVIL                              /00044201/ [Concomitant]
     Dosage: 200 mg, UNK
  7. TYLENOL                            /00435101/ [Concomitant]
     Dosage: 325 mg, UNK

REACTIONS (4)
  - Influenza like illness [Unknown]
  - Sinus disorder [Unknown]
  - Wheezing [Unknown]
  - Cough [Unknown]
